FAERS Safety Report 5281596-7 (Version None)
Quarter: 2007Q1

REPORT INFORMATION
  Report Type: 
  Country: None (occurrence: None)
  Receive Date: 20070330
  Receipt Date: 20070328
  Transmission Date: 20070707
  Serious: Yes (Death, Other)
  Sender: FDA-Public Use
  Company Number: AR-BRISTOL-MYERS SQUIBB COMPANY-13711338

PATIENT
  Age: 65 Year
  Sex: Female

DRUGS (1)
  1. CISPLATIN [Suspect]
     Indication: PLEURAL MESOTHELIOMA

REACTIONS (2)
  - PULMONARY EMBOLISM [None]
  - REVERSIBLE POSTERIOR LEUKOENCEPHALOPATHY SYNDROME [None]
